FAERS Safety Report 18207383 (Version 1)
Quarter: 2020Q3

REPORT INFORMATION
  Report Type: Spontaneous
  Country: US (occurrence: US)
  Receive Date: 20200827
  Receipt Date: 20200827
  Transmission Date: 20201103
  Serious: Yes (Other)
  Sender: FDA-Public Use
  Company Number: None

PATIENT
  Age: 57 Year
  Sex: Female

DRUGS (1)
  1. SMART CARE HAND SANITIZER 16.9 OZ [Suspect]
     Active Substance: ALCOHOL

REACTIONS (5)
  - Nausea [None]
  - Tremor [None]
  - Vision blurred [None]
  - Product complaint [None]
  - Muscle twitching [None]
